FAERS Safety Report 7761350-4 (Version None)
Quarter: 2011Q3

REPORT INFORMATION
  Report Type: 
  Country: None (occurrence: None)
  Receive Date: 20110920
  Receipt Date: 20110913
  Transmission Date: 20111222
  Serious: Yes (Hospitalization)
  Sender: FDA-Public Use
  Company Number: US-PURDUE-USA-2011-0074010

PATIENT
  Age: 76 Year
  Sex: Female

DRUGS (2)
  1. BUTRANS [Suspect]
     Indication: INTERVERTEBRAL DISC DEGENERATION
  2. BUTRANS [Suspect]
     Indication: BACK PAIN
     Dosage: 10 MCG/HR, UNK
     Route: 062
     Dates: start: 20110801, end: 20110802

REACTIONS (3)
  - HOSPITALISATION [None]
  - DIZZINESS [None]
  - NAUSEA [None]
